FAERS Safety Report 7262195-4 (Version None)
Quarter: 2011Q1

REPORT INFORMATION
  Report Type: 
  Country: None (occurrence: None)
  Receive Date: 20110130
  Receipt Date: 20101114
  Transmission Date: 20110831
  Serious: No
  Sender: FDA-Public Use
  Company Number: US-ABBOTT-10P-163-0685410-00

PATIENT
  Age: 49 Year
  Sex: Female

DRUGS (5)
  1. PRISTIQ [Concomitant]
     Indication: DEPRESSION
  2. DIOVAN [Concomitant]
     Indication: HYPERTENSION
     Route: 048
  3. MELOXICAM [Concomitant]
     Indication: ARTHRITIS
  4. HUMIRA [Suspect]
     Indication: PSORIASIS
     Dates: start: 20101108
  5. PRISTIQ [Concomitant]
     Indication: ANXIETY
     Route: 048

REACTIONS (1)
  - NASOPHARYNGITIS [None]
